FAERS Safety Report 13611093 (Version 1)
Quarter: 2017Q2

REPORT INFORMATION
  Report Type: Spontaneous
  Country: US (occurrence: US)
  Receive Date: 20170605
  Receipt Date: 20170605
  Transmission Date: 20170830
  Serious: Yes (Hospitalization, Disabling)
  Sender: FDA-Public Use
  Company Number: None

PATIENT
  Age: 69 Year
  Sex: Female
  Weight: 65.83 kg

DRUGS (18)
  1. ESTRIOL/DHEA/TESTOSTERONE CREAM [Concomitant]
  2. CALCIUM [Concomitant]
     Active Substance: CALCIUM
  3. D-RIBOSE [Concomitant]
     Active Substance: DIETARY SUPPLEMENT
  4. METRONIDAZOLE. [Suspect]
     Active Substance: METRONIDAZOLE
     Indication: COLONIC ABSCESS
     Dosage: 1 PILL; 3X BY MOUTH?
     Route: 048
     Dates: start: 20170109, end: 20170112
  5. FLONASE [Concomitant]
     Active Substance: FLUTICASONE PROPIONATE
  6. HERBALS [Concomitant]
     Active Substance: HERBALS
  7. OMEGA 3S [Concomitant]
  8. CORIOLOUS MUSHROOM EXTRACT [Concomitant]
  9. SYNTHROID [Concomitant]
     Active Substance: LEVOTHYROXINE SODIUM
  10. VITAMIN B COMPLEX [Concomitant]
     Active Substance: CYANOCOBALAMIN\DEXPANTHENOL\NIACINAMIDE\PYRIDOXINE HYDROCHLORIDE\RIBOFLAVIN 5^-PHOSPHATE SODIUM\THIAMINE HYDROCHLORIDE\VITAMIN B COMPLEX
  11. CURCUMIN [Concomitant]
     Active Substance: CURCUMIN
  12. VITAMIN D3 [Concomitant]
     Active Substance: CHOLECALCIFEROL
  13. MAGNESIUM [Concomitant]
     Active Substance: MAGNESIUM
  14. MELATONIN [Concomitant]
     Active Substance: MELATONIN
  15. DOCUSATE SODIUM. [Concomitant]
     Active Substance: DOCUSATE SODIUM
  16. METFORMIN [Concomitant]
     Active Substance: METFORMIN HYDROCHLORIDE
  17. PROGESTERONE. [Concomitant]
     Active Substance: PROGESTERONE
  18. N-ACETYL L CARNITINE-ALPHA LIPOIC ACID-COQ10 [Concomitant]

REACTIONS (2)
  - Neuropathy peripheral [None]
  - Encephalopathy [None]

NARRATIVE: CASE EVENT DATE: 20170112
